FAERS Safety Report 7069608-1 (Version None)
Quarter: 2010Q4

REPORT INFORMATION
  Report Type: 
  Country: None (occurrence: None)
  Receive Date: 20101028
  Receipt Date: 20100506
  Transmission Date: 20110411
  Serious: No
  Sender: FDA-Public Use
  Company Number: US-WYE-H14334410

PATIENT
  Sex: Female
  Weight: 65.83 kg

DRUGS (11)
  1. EFFEXOR [Suspect]
     Indication: DEPRESSION
     Dosage: OVERDOSE AMOUNT OF 450 MG TWICE DAILY
     Route: 048
     Dates: start: 20100201, end: 20100201
  2. DOXEPIN HCL [Concomitant]
  3. DIAZEPAM [Concomitant]
  4. HYDROXYZINE [Concomitant]
  5. RANITIDINE [Interacting]
     Dosage: UNKNOWN
  6. LOVASTATIN [Concomitant]
  7. PLAVIX [Concomitant]
  8. ZOLOFT [Concomitant]
  9. WELLBUTRIN [Concomitant]
  10. LITHIUM [Concomitant]
  11. CRESTOR [Concomitant]

REACTIONS (5)
  - ACCIDENTAL OVERDOSE [None]
  - DRUG EFFECT DECREASED [None]
  - DRUG INTERACTION [None]
  - INTENTIONAL DRUG MISUSE [None]
  - UNEVALUABLE EVENT [None]
